FAERS Safety Report 5733944-9 (Version None)
Quarter: 2008Q2

REPORT INFORMATION
  Report Type: 
  Country: None (occurrence: None)
  Receive Date: 20080509
  Receipt Date: 20080415
  Transmission Date: 20081010
  Serious: No
  Sender: FDA-Public Use
  Company Number: US-BOEHRINGER INGELHEIM GMBH, GERMANY-2008-BP-06003BP

PATIENT
  Sex: Female

DRUGS (7)
  1. SPIRIVA [Suspect]
     Indication: EMPHYSEMA
     Route: 055
     Dates: start: 20060101
  2. AMIODARONE HCL [Suspect]
     Indication: PALPITATIONS
  3. DESOXIMETASONE [Concomitant]
     Route: 061
  4. TOPROL-XL [Concomitant]
  5. LIPITOR [Concomitant]
  6. BENICAR [Concomitant]
  7. ASPIRIN [Concomitant]

REACTIONS (3)
  - ERYTHEMA [None]
  - PRURITUS [None]
  - SWELLING FACE [None]
